FAERS Safety Report 19043908 (Version 1)
Quarter: 2021Q1

REPORT INFORMATION
  Report Type: Spontaneous
  Country: CA (occurrence: CA)
  Receive Date: 20210322
  Receipt Date: 20210322
  Transmission Date: 20210420
  Serious: Yes (Other)
  Sender: FDA-Public Use
  Company Number: CA-PFIZER INC-2021276981

PATIENT
  Age: 15 Year
  Sex: Male

DRUGS (29)
  1. SERTRALINE HCL [Suspect]
     Active Substance: SERTRALINE HYDROCHLORIDE
     Dosage: UNK
     Route: 065
  2. OLANZAPINE. [Suspect]
     Active Substance: OLANZAPINE
     Dosage: 10 MG, 2X/DAY 20.0 MG MILLIGRAM(S) ( 10 MG MILLIGRAM(S) ),1 IN 12HOUR
     Route: 065
  3. SERTRALINE HCL [Suspect]
     Active Substance: SERTRALINE HYDROCHLORIDE
     Indication: BEHAVIOUR DISORDER
     Dosage: 100 MG, 1X/DAY
     Route: 065
  4. QUETIAPINE FUMARATE. [Suspect]
     Active Substance: QUETIAPINE FUMARATE
     Dosage: 50 MG, 1X/DAY
     Route: 048
  5. SERTRALINE HCL [Suspect]
     Active Substance: SERTRALINE HYDROCHLORIDE
     Indication: INTELLECTUAL DISABILITY
     Dosage: 100 MG, 1X/DAY
     Route: 065
  6. SERTRALINE HCL [Suspect]
     Active Substance: SERTRALINE HYDROCHLORIDE
     Dosage: UNK
     Route: 065
  7. OLANZAPINE. [Suspect]
     Active Substance: OLANZAPINE
     Indication: BEHAVIOUR DISORDER
     Dosage: UNK
     Route: 065
  8. QUETIAPINE FUMARATE. [Suspect]
     Active Substance: QUETIAPINE FUMARATE
     Dosage: 500 MG, 1X/DAY
     Route: 048
  9. CATAPRESAN [CLONIDINE] [Suspect]
     Active Substance: CLONIDINE
     Indication: INTELLECTUAL DISABILITY
     Dosage: 0.1 MG, 2X/DAY 0.2 MG (0.1 MILLIGRAM,1 IN 12 HOUR )
     Route: 065
  10. CATAPRESAN [CLONIDINE] [Suspect]
     Active Substance: CLONIDINE
     Indication: BEHAVIOUR DISORDER
     Dosage: UNK
     Route: 065
  11. CATAPRESAN [CLONIDINE] [Suspect]
     Active Substance: CLONIDINE
     Dosage: UNK
     Route: 065
  12. QUETIAPINE FUMARATE. [Suspect]
     Active Substance: QUETIAPINE FUMARATE
     Dosage: UNK
     Route: 048
  13. QUETIAPINE FUMARATE. [Suspect]
     Active Substance: QUETIAPINE FUMARATE
     Dosage: 50 MG, 1X/DAY
     Route: 048
  14. ZIPRASIDONE. [Concomitant]
     Active Substance: ZIPRASIDONE
     Indication: AUTISM SPECTRUM DISORDER
     Dosage: 40 MG, 2X/DAY  (80.0 MG MILLIGRAM(S) ( 40 MILLIGRAM ),1 IN 12HOUR
     Route: 065
  15. SERTRALINE HCL [Suspect]
     Active Substance: SERTRALINE HYDROCHLORIDE
     Dosage: 100 MG, 1X/DAY
     Route: 065
  16. OLANZAPINE. [Suspect]
     Active Substance: OLANZAPINE
     Indication: INTELLECTUAL DISABILITY
     Dosage: 10 MG, 2X/DAY (20.0 MG MILLIGRAM(S) ( 10 MG MILLIGRAM(S) ),1 IN 12HOUR)
     Route: 065
  17. OLANZAPINE. [Suspect]
     Active Substance: OLANZAPINE
     Dosage: UNK
     Route: 065
  18. QUETIAPINE FUMARATE. [Suspect]
     Active Substance: QUETIAPINE FUMARATE
     Indication: BEHAVIOUR DISORDER
     Dosage: 500 MG, 1X/DAY
     Route: 048
  19. QUETIAPINE FUMARATE. [Suspect]
     Active Substance: QUETIAPINE FUMARATE
     Indication: AUTISM SPECTRUM DISORDER
     Dosage: UNK
     Route: 048
  20. QUETIAPINE FUMARATE. [Suspect]
     Active Substance: QUETIAPINE FUMARATE
     Dosage: UNK
     Route: 048
  21. SERTRALINE HCL [Suspect]
     Active Substance: SERTRALINE HYDROCHLORIDE
     Indication: BEHAVIOUR DISORDER
     Dosage: UNK
     Route: 065
  22. CATAPRESAN [CLONIDINE] [Suspect]
     Active Substance: CLONIDINE
     Dosage: 0.1 MG, 2X/DAY 0.2 MG (0.1 MILLIGRAM,1 IN 12 HOUR )
     Route: 065
  23. QUETIAPINE FUMARATE. [Suspect]
     Active Substance: QUETIAPINE FUMARATE
     Indication: INTELLECTUAL DISABILITY
     Dosage: 50 MG, 1X/DAY
     Route: 048
  24. QUETIAPINE FUMARATE. [Suspect]
     Active Substance: QUETIAPINE FUMARATE
     Dosage: 500 MG, 1X/DAY
     Route: 065
  25. CATAPRESAN [CLONIDINE] [Suspect]
     Active Substance: CLONIDINE
     Dosage: 0.1 MG, 2X/DAY 0.2 MG (0.1 MILLIGRAM,1 IN 12 HOUR )
     Route: 065
  26. LAMOTRIGINE. [Suspect]
     Active Substance: LAMOTRIGINE
     Indication: BEHAVIOUR DISORDER
     Dosage: 25 MG, 2X/DAY (50.0 MG MILLIGRAM(S) ( 25 MG MILLIGRAM(S) ),1 IN 12HOUR)
     Route: 065
  27. SERTRALINE HCL [Suspect]
     Active Substance: SERTRALINE HYDROCHLORIDE
     Indication: AUTISM SPECTRUM DISORDER
     Dosage: 100 MG, 1X/DAY
     Route: 065
  28. CATAPRESAN [CLONIDINE] [Suspect]
     Active Substance: CLONIDINE
     Indication: AUTISM SPECTRUM DISORDER
     Dosage: UNK
     Route: 065
  29. ZIPRASIDONE. [Concomitant]
     Active Substance: ZIPRASIDONE
     Indication: INTELLECTUAL DISABILITY
     Dosage: 40 MG, 2X/DAY (80.0 MG MILLIGRAM(S) ( 40 MILLIGRAM ),1 IN 12HOUR)
     Route: 065

REACTIONS (7)
  - Product prescribing issue [Recovered/Resolved]
  - Overweight [Recovered/Resolved]
  - Off label use [Unknown]
  - Obesity [Recovered/Resolved]
  - Product use issue [Recovered/Resolved]
  - Blood prolactin increased [Recovered/Resolved]
  - Aggression [Recovered/Resolved]
